FAERS Safety Report 5673955-5 (Version None)
Quarter: 2008Q1

REPORT INFORMATION
  Report Type: 
  Country: None (occurrence: None)
  Receive Date: 20080319
  Receipt Date: 20080319
  Transmission Date: 20080703
  Serious: Yes (Other)
  Sender: FDA-Public Use
  Company Number: None

PATIENT
  Sex: Male
  Weight: 87.5442 kg

DRUGS (2)
  1. CEREZYME [Suspect]
     Indication: GAUCHER'S DISEASE
     Dosage: 5200 UNITS  Q 2 WEEKS  IV
     Route: 042
     Dates: start: 20080118, end: 20080314
  2. CEREZYME [Suspect]
     Indication: GAUCHER'S DISEASE
     Dosage: 5200 UNITS  Q 2 WEEKS  IV
     Route: 042
     Dates: start: 20080314

REACTIONS (8)
  - ABDOMINAL PAIN [None]
  - BLOOD PRESSURE DECREASED [None]
  - DIPLOPIA [None]
  - HEART RATE DECREASED [None]
  - HYPERHIDROSIS [None]
  - PARAESTHESIA ORAL [None]
  - PRURITUS [None]
  - URTICARIA [None]
